FAERS Safety Report 18713120 (Version 1)
Quarter: 2021Q1

REPORT INFORMATION
  Report Type: Spontaneous
  Country: CN (occurrence: CN)
  Receive Date: 20210107
  Receipt Date: 20210107
  Transmission Date: 20210419
  Serious: Yes (Other)
  Sender: FDA-Public Use
  Company Number: CN-PFIZER INC-2021000982

PATIENT
  Age: 12 Year
  Sex: Male
  Weight: 54.5 kg

DRUGS (2)
  1. SOLU?MEDROL [Suspect]
     Active Substance: METHYLPREDNISOLONE SODIUM SUCCINATE
     Indication: SYMPTOMATIC TREATMENT
     Dosage: 600 MG, 1X/DAY
     Route: 041
     Dates: start: 20201220, end: 20201221
  2. ISONIAZID. [Concomitant]
     Active Substance: ISONIAZID
     Indication: TUBERCULOSIS
     Dosage: 0.3 G, 1X/DAY
     Route: 048
     Dates: start: 20201212, end: 20201221

REACTIONS (7)
  - Gaze palsy [Recovering/Resolving]
  - Dysphoria [Unknown]
  - Uraemic encephalopathy [Unknown]
  - Facial paralysis [Recovering/Resolving]
  - Seizure [Recovering/Resolving]
  - Hypoxia [Recovered/Resolved]
  - Heart rate increased [Unknown]

NARRATIVE: CASE EVENT DATE: 20201221
